FAERS Safety Report 4311304-5 (Version None)
Quarter: 2004Q1

REPORT INFORMATION
  Report Type: 
  Country: None (occurrence: None)
  Receive Date: 20040304
  Receipt Date: 20040227
  Transmission Date: 20041129
  Serious: Yes (Hospitalization)
  Sender: FDA-Public Use
  Company Number: FR-GLAXOSMITHKLINE-B0325069A

PATIENT
  Age: 76 Year
  Sex: Female
  Weight: 72 kg

DRUGS (2)
  1. CLAMOXYL [Suspect]
     Indication: ENCEPHALITIS
     Dosage: 12G PER DAY
     Route: 042
     Dates: start: 20030812, end: 20030901
  2. LEVOTHYROXINE SODIUM [Concomitant]
     Route: 065

REACTIONS (7)
  - BLOOD CREATINE INCREASED [None]
  - CATHETER RELATED INFECTION [None]
  - ESCHERICHIA URINARY TRACT INFECTION [None]
  - HAEMATURIA [None]
  - LEUKOCYTURIA [None]
  - PROTEINURIA [None]
  - RENAL FAILURE ACUTE [None]
